FAERS Safety Report 6774351-X (Version None)
Quarter: 2010Q2

REPORT INFORMATION
  Report Type: 
  Country: None (occurrence: None)
  Receive Date: 20100617
  Receipt Date: 20100607
  Transmission Date: 20101027
  Serious: Yes (Hospitalization)
  Sender: FDA-Public Use
  Company Number: FR-JNJFOC-20100603963

PATIENT
  Age: 85 Year
  Sex: Female

DRUGS (14)
  1. LOPERAMIDE HYDROCHLORIDE [Suspect]
     Indication: ILL-DEFINED DISORDER
     Route: 048
  2. AMLOR [Suspect]
     Indication: ILL-DEFINED DISORDER
     Route: 048
  3. COKENZEN [Suspect]
     Indication: ILL-DEFINED DISORDER
     Route: 048
  4. MYOLASTAN [Suspect]
     Indication: ILL-DEFINED DISORDER
     Route: 048
  5. SOLUPRED [Suspect]
     Indication: ILL-DEFINED DISORDER
     Route: 048
  6. INIPOMP [Suspect]
     Indication: ILL-DEFINED DISORDER
     Route: 048
  7. MEDIATENSYL [Suspect]
     Indication: ILL-DEFINED DISORDER
     Dosage: 30 MG IN THE MORNING AND 30 MG IN THE EVENING
     Route: 048
  8. ZECLAR [Suspect]
     Indication: ILL-DEFINED DISORDER
     Route: 048
  9. FLECAINIDE ACETATE [Suspect]
     Indication: ILL-DEFINED DISORDER
     Dosage: HALF TABLET TWICE DAILY
     Route: 065
  10. SOTALEX [Suspect]
     Indication: ILL-DEFINED DISORDER
     Dosage: HALF A TABLET DAILY
     Route: 048
  11. LEVOTHYROXINE SODIUM [Suspect]
     Indication: ILL-DEFINED DISORDER
     Route: 048
  12. CALCITONIN [Suspect]
     Indication: ILL-DEFINED DISORDER
     Route: 048
  13. MANNITOL [Suspect]
     Indication: ILL-DEFINED DISORDER
     Route: 048
  14. DAFALGAN [Suspect]
     Indication: ILL-DEFINED DISORDER
     Route: 048

REACTIONS (2)
  - ALTERED STATE OF CONSCIOUSNESS [None]
  - HYPONATRAEMIA [None]
